FAERS Safety Report 9938161 (Version 3)
Quarter: 2014Q1

REPORT INFORMATION
  Report Type: Report from Study
  Country: FR (occurrence: FR)
  Receive Date: 20140303
  Receipt Date: 20140306
  Transmission Date: 20141002
  Serious: Yes (Other)
  Sender: FDA-Public Use
  Company Number: FR-UCBSA-073260

PATIENT
  Age: 77 Year
  Sex: Female
  Weight: 68 kg

DRUGS (11)
  1. CIMZIA [Suspect]
     Indication: RHEUMATOID ARTHRITIS
     Route: 058
     Dates: start: 20120613, end: 20121119
  2. METHOTREXATE [Suspect]
     Indication: RHEUMATOID ARTHRITIS
     Dosage: 10MG WEEKLY
     Dates: start: 200703
  3. SPECIAFOLDINE [Concomitant]
     Indication: PROPHYLAXIS AGAINST GASTROINTESTINAL ULCER
     Dosage: 15MG WEEKLY
  4. INEXIUM [Concomitant]
     Indication: GASTROOESOPHAGEAL REFLUX PROPHYLAXIS
     Dosage: 40MG DAILY
  5. CALCIDOSE [Concomitant]
     Indication: CALCIUM DEFICIENCY
  6. CRESTOR [Concomitant]
     Indication: HYPERCHOLESTEROLAEMIA
     Dosage: 5MG DAILY
  7. NATISPRAY [Concomitant]
     Indication: PROPHYLAXIS
     Dosage: 0.15MG AS REQUIRED
  8. LASILIX FAIBLE [Concomitant]
     Indication: HYPERTENSION
     Dosage: 20MG DAILY
  9. AMLOR [Concomitant]
     Indication: HYPERTENSION
     Dosage: 5MG DAILY
  10. PLAVIX [Concomitant]
     Indication: CARDIAC DISORDER
     Dosage: 75MG DAILY
  11. PREVISCAN [Concomitant]
     Indication: THROMBOSIS PROPHYLAXIS
     Dosage: 10MG DAILY

REACTIONS (3)
  - Neutropenia [Not Recovered/Not Resolved]
  - Urinary tract infection [Recovered/Resolved]
  - Middle insomnia [Unknown]
